FAERS Safety Report 6080753-X (Version None)
Quarter: 2009Q1

REPORT INFORMATION
  Report Type: 
  Country: None (occurrence: None)
  Receive Date: 20090217
  Receipt Date: 20090205
  Transmission Date: 20090719
  Serious: Yes (Hospitalization, Other)
  Sender: FDA-Public Use
  Company Number: US-AVENTIS-200910619US

PATIENT
  Sex: Male
  Weight: 120.5 kg

DRUGS (10)
  1. TAXOTERE [Suspect]
     Dosage: DOSE: 175 MG EVERY 21 DAYS FOR 8 DOSES
     Route: 042
     Dates: start: 20080201, end: 20080717
  2. LUPRON [Concomitant]
     Dosage: DOSE: UNK
     Dates: start: 20030101
  3. PREDNISONE [Concomitant]
     Dosage: DOSE: UNK
     Dates: start: 20080201, end: 20080201
  4. LIPITOR [Concomitant]
  5. ASPIRIN [Concomitant]
  6. DEXAMETHASONE [Concomitant]
     Dosage: DOSE: UNK
  7. SPIRIVA [Concomitant]
     Dosage: DOSE: UNK
  8. PERCOCET [Concomitant]
     Dosage: DOSE: 5/325 EVERY 6 HOURS AS NEEDED FOR PAIN
  9. O2 [Concomitant]
     Dosage: DOSE: BY NASAL CANNULA AT 2 L / MINUTE
  10. CARVEDILOL [Concomitant]
     Route: 048

REACTIONS (13)
  - BACTERIAL INFECTION [None]
  - BRAIN NATRIURETIC PEPTIDE INCREASED [None]
  - CARDIAC FAILURE CONGESTIVE [None]
  - CYANOSIS [None]
  - DYSPNOEA [None]
  - FIBRINOLYSIS INCREASED [None]
  - OEDEMA PERIPHERAL [None]
  - OXYGEN SATURATION DECREASED [None]
  - PALLOR [None]
  - PNEUMONIA [None]
  - PRODUCTIVE COUGH [None]
  - PULMONARY FIBROSIS [None]
  - PULMONARY HYPERTENSION [None]
